FAERS Safety Report 16064667 (Version 1)
Quarter: 2019Q1

REPORT INFORMATION
  Report Type: Spontaneous
  Country: US (occurrence: US)
  Receive Date: 20190312
  Receipt Date: 20190312
  Transmission Date: 20190418
  Serious: No
  Sender: FDA-Public Use
  Company Number: PHEH2019US009716

PATIENT
  Sex: Male

DRUGS (1)
  1. COSENTYX [Suspect]
     Active Substance: SECUKINUMAB
     Indication: PRODUCT USED FOR UNKNOWN INDICATION
     Dosage: 150 MG/ML, Q2W
     Route: 065

REACTIONS (7)
  - Sinusitis [Unknown]
  - Oropharyngeal pain [Unknown]
  - Alopecia [Unknown]
  - Piloerection [Unknown]
  - Urticaria [Unknown]
  - Hypersensitivity [Unknown]
  - Throat tightness [Unknown]
